FAERS Safety Report 9924048 (Version 1)
Quarter: 2014Q1

REPORT INFORMATION
  Report Type: Spontaneous
  Country: DE (occurrence: DE)
  Receive Date: 20140225
  Receipt Date: 20140225
  Transmission Date: 20141002
  Serious: Yes (Congenital Anomaly)
  Sender: FDA-Public Use
  Company Number: DE-MYLANLABS-2014S1003252

PATIENT
  Age: 1 Day
  Sex: Male
  Weight: 2.8 kg

DRUGS (4)
  1. AZATHIOPRIN [Suspect]
     Dosage: 150 [MG/D (VATER) ]
     Route: 064
     Dates: start: 20050924, end: 20060701
  2. CLAVERSAL [Concomitant]
     Route: 064
     Dates: start: 20050924, end: 20060701
  3. PARACETAMOL [Concomitant]
     Dosage: SELDOM
     Route: 064
  4. FOLIO FORTE [Concomitant]
     Dosage: 0.8 [MG/D (BIS 0.4 MG/D, MUTTER) ]
     Route: 064
     Dates: start: 20050924, end: 20060701

REACTIONS (2)
  - Hypospadias [Recovered/Resolved with Sequelae]
  - Exposure via father [Unknown]
